FAERS Safety Report 13981322 (Version 1)
Quarter: 2017Q3

REPORT INFORMATION
  Report Type: Spontaneous
  Country: US (occurrence: US)
  Receive Date: 20170915
  Receipt Date: 20170915
  Transmission Date: 20171128
  Serious: Yes (Other)
  Sender: FDA-Public Use
  Company Number: None

PATIENT
  Age: 30 Year
  Sex: Female
  Weight: 64.8 kg

DRUGS (8)
  1. PROVIGIL [Concomitant]
     Active Substance: MODAFINIL
  2. SUMAVEL [Concomitant]
     Active Substance: SUMATRIPTAN SUCCINATE
  3. TRACE MINERALS [Concomitant]
  4. SPIRINOLACTONE (QUALITEST PHARMACEUTICALS) [Concomitant]
     Active Substance: SPIRONOLACTONE
  5. TREXIMET [Concomitant]
     Active Substance: NAPROXEN SODIUM\SUMATRIPTAN SUCCINATE
  6. VYVANSE [Suspect]
     Active Substance: LISDEXAMFETAMINE DIMESYLATE
     Indication: ATTENTION DEFICIT/HYPERACTIVITY DISORDER
     Dosage: ?          QUANTITY:1 CAPSULE(S);?
     Route: 048
  7. TYLENOL [Concomitant]
     Active Substance: ACETAMINOPHEN
  8. METHYLATED B-VITAMIN [Concomitant]

REACTIONS (8)
  - Treatment noncompliance [None]
  - Product physical issue [None]
  - Road traffic accident [None]
  - Drug effect decreased [None]
  - Drug ineffective [None]
  - Therapeutic response shortened [None]
  - Product quality issue [None]
  - Attention deficit/hyperactivity disorder [None]

NARRATIVE: CASE EVENT DATE: 20150901
